FAERS Safety Report 4552077-0 (Version None)
Quarter: 2005Q1

REPORT INFORMATION
  Report Type: 
  Country: None (occurrence: None)
  Receive Date: 20050112
  Receipt Date: 20041217
  Transmission Date: 20050727
  Serious: Yes (Hospitalization)
  Sender: FDA-Public Use
  Company Number: BDI-006770

PATIENT
  Age: 80 Year
  Sex: Male

DRUGS (2)
  1. PROHANCE [Suspect]
     Indication: NUCLEAR MAGNETIC RESONANCE IMAGING ABDOMINAL
     Dosage: 40 ML ONCE IV
     Route: 042
     Dates: start: 20041217, end: 20041217
  2. PROHANCE [Suspect]
     Indication: RENAL ARTERY STENOSIS
     Dosage: 40 ML ONCE IV
     Route: 042
     Dates: start: 20041217, end: 20041217

REACTIONS (2)
  - ANAPHYLACTIC REACTION [None]
  - MYOCARDIAL INFARCTION [None]
